FAERS Safety Report 4467013-5 (Version None)
Quarter: 2004Q3

REPORT INFORMATION
  Report Type: 
  Country: None (occurrence: None)
  Receive Date: 20040928
  Receipt Date: 20040928
  Transmission Date: 20050211
  Serious: Yes (Life-Threatening, Hospitalization)
  Sender: FDA-Public Use
  Company Number: None

PATIENT
  Age: 73 Year
  Sex: Male
  Weight: 108.3 kg

DRUGS (8)
  1. CEFAZOLIN [Suspect]
     Indication: PREOPERATIVE CARE
     Dosage: 1 G IV X 1
     Route: 042
     Dates: start: 20040923
  2. MEPERIDINE INJ, SOLN [Concomitant]
  3. METFORMIN HCL [Concomitant]
  4. GLIPIZIDE TAB [Concomitant]
  5. FOSINOPRIL TAB [Concomitant]
  6. HYDROXYZINE INJ, SOLN [Concomitant]
  7. ACETAMINOPHEN/**OXYCODONE** TAB [Concomitant]
  8. FENTANYL [Concomitant]

REACTIONS (2)
  - BRONCHOSPASM [None]
  - HYPOXIA [None]
